FAERS Safety Report 10820857 (Version 1)
Quarter: 2015Q1

REPORT INFORMATION
  Report Type: Spontaneous
  Country: BR (occurrence: BR)
  Receive Date: 20150218
  Receipt Date: 20150218
  Transmission Date: 20150721
  Serious: Yes (Other)
  Sender: FDA-Public Use
  Company Number: BR-PFIZER INC-2015046762

PATIENT
  Sex: Female

DRUGS (1)
  1. FIBRASE [Suspect]
     Active Substance: CHLORAMPHENICOL

REACTIONS (1)
  - Bedridden [Not Recovered/Not Resolved]
